FAERS Safety Report 21867598 (Version 1)
Quarter: 2023Q1

REPORT INFORMATION
  Report Type: Spontaneous
  Country: US (occurrence: US)
  Receive Date: 20230116
  Receipt Date: 20230116
  Transmission Date: 20230417
  Serious: Yes (Death, Hospitalization, Other)
  Sender: FDA-Public Use
  Company Number: US-GLAXOSMITHKLINE-USCH2023GSK001517

PATIENT

DRUGS (2)
  1. IBUPROFEN [Suspect]
     Active Substance: IBUPROFEN
     Indication: Product used for unknown indication
     Dosage: UNK
     Route: 048
  2. MAGNESIUM [Suspect]
     Active Substance: MAGNESIUM
     Indication: Product used for unknown indication
     Dosage: UNK
     Route: 048

REACTIONS (8)
  - Suspected suicide [Fatal]
  - Cardiac arrest [Fatal]
  - Ileus [Fatal]
  - Disseminated intravascular coagulation [Fatal]
  - Ecchymosis [Fatal]
  - Abdominal discomfort [Fatal]
  - Toxicity to various agents [Fatal]
  - Unresponsive to stimuli [Fatal]
